FAERS Safety Report 5839623-1 (Version None)
Quarter: 2008Q3

REPORT INFORMATION
  Report Type: 
  Country: None (occurrence: None)
  Receive Date: 20080811
  Receipt Date: 20080801
  Transmission Date: 20090109
  Serious: Yes (Other)
  Sender: FDA-Public Use
  Company Number: US-JNJFOC-20080800984

PATIENT
  Age: 80 Year
  Sex: Female

DRUGS (1)
  1. LEVAQUIN [Suspect]
     Indication: CYSTITIS
     Route: 048

REACTIONS (3)
  - PAIN IN EXTREMITY [None]
  - TENDON DISORDER [None]
  - THROMBOSIS [None]
